FAERS Safety Report 8515129-6 (Version None)
Quarter: 2012Q3

REPORT INFORMATION
  Report Type: 
  Country: None (occurrence: None)
  Receive Date: 20120705
  Receipt Date: 20120625
  Transmission Date: 20120928
  Serious: Yes (Hospitalization, Other)
  Sender: FDA-Public Use
  Company Number: AUR-APL-2012-02790

PATIENT
  Age: 50 Year
  Sex: Female

DRUGS (1)
  1. GABAPENTIN [Suspect]
     Indication: PRODUCT USED FOR UNKNOWN INDICATION
     Dosage: 80 CAPSULES OF GABAPENTIN 300 MG,OR ; 25 CAPSULES OF GABAPENTIN 300MG
     Route: 048

REACTIONS (8)
  - DRUG ABUSE [None]
  - OVERDOSE [None]
  - DOCUMENTED HYPERSENSITIVITY TO ADMINISTERED DRUG [None]
  - NEUROTOXICITY [None]
  - STATUS EPILEPTICUS [None]
  - RESPIRATORY DEPRESSION [None]
  - POSTERIOR REVERSIBLE ENCEPHALOPATHY SYNDROME [None]
  - HYPERTENSION [None]
